FAERS Safety Report 19818239 (Version 1)
Quarter: 2021Q3

REPORT INFORMATION
  Report Type: Spontaneous
  Country: CA (occurrence: CA)
  Receive Date: 20210911
  Receipt Date: 20210911
  Transmission Date: 20211014
  Serious: Yes (Life-Threatening, Hospitalization)
  Sender: FDA-Public Use
  Company Number: CA-TEVA-2021-CA-1948309

PATIENT
  Age: 67 Year
  Sex: Female
  Weight: 108 kg

DRUGS (17)
  1. ONDANSETRON [Concomitant]
     Active Substance: ONDANSETRON
  2. ROSUVASTATIN. [Concomitant]
     Active Substance: ROSUVASTATIN
     Route: 058
  3. FUROSEMIDE. [Concomitant]
     Active Substance: FUROSEMIDE
     Route: 065
  4. CISPLATIN INJECTION [Suspect]
     Active Substance: CISPLATIN
     Indication: SMALL CELL CARCINOMA OF THE CERVIX
     Route: 042
  5. CISPLATIN INJECTION [Suspect]
     Active Substance: CISPLATIN
     Indication: METASTASES TO OVARY
  6. CANDESARTAN. [Concomitant]
     Active Substance: CANDESARTAN
  7. MAGNESIUM OXIDE. [Concomitant]
     Active Substance: MAGNESIUM OXIDE
  8. ETOPOSIDE. [Suspect]
     Active Substance: ETOPOSIDE
     Route: 042
  9. DIMENHYDRINATE. [Concomitant]
     Active Substance: DIMENHYDRINATE
  10. CISPLATIN INJECTION [Suspect]
     Active Substance: CISPLATIN
     Indication: METASTASES TO LUNG
  11. LORAZEPAM. [Concomitant]
     Active Substance: LORAZEPAM
  12. CISPLATIN INJECTION [Suspect]
     Active Substance: CISPLATIN
     Indication: METASTASES TO CENTRAL NERVOUS SYSTEM
  13. HYDROMORPHONE [Concomitant]
     Active Substance: HYDROMORPHONE
  14. NYSTATIN. [Concomitant]
     Active Substance: NYSTATIN
  15. POTASSIUM CHLORIDE. [Concomitant]
     Active Substance: POTASSIUM CHLORIDE
  16. METOCLOPRAMIDE. [Concomitant]
     Active Substance: METOCLOPRAMIDE
  17. TYLENOL [Concomitant]
     Active Substance: ACETAMINOPHEN

REACTIONS (3)
  - Nausea [Recovered/Resolved]
  - Vomiting [Recovered/Resolved]
  - Dehydration [Recovered/Resolved]
